FAERS Safety Report 7206337-5 (Version None)
Quarter: 2011Q1

REPORT INFORMATION
  Report Type: 
  Country: None (occurrence: None)
  Receive Date: 20110103
  Receipt Date: 20110103
  Transmission Date: 20110831
  Serious: Yes (Hospitalization)
  Sender: FDA-Public Use
  Company Number: PHHO2007IT20868

PATIENT
  Sex: Male
  Weight: 72 kg

DRUGS (3)
  1. SANDOSTATIN [Suspect]
     Dosage: 0.2 MG/ML
     Route: 058
     Dates: start: 20071123, end: 20071126
  2. PLACEBO [Suspect]
     Indication: CARCINOID TUMOUR
     Dosage: PLACEBO
     Route: 048
     Dates: start: 20071023, end: 20071126
  3. SANDOSTATIN LAR [Suspect]
     Indication: CARCINOID TUMOUR

REACTIONS (3)
  - NEOPLASM MALIGNANT [None]
  - DIARRHOEA [None]
  - DRUG INEFFECTIVE [None]
